FAERS Safety Report 8608952-0 (Version None)
Quarter: 2012Q3

REPORT INFORMATION
  Report Type: 
  Country: None (occurrence: None)
  Receive Date: 20120821
  Receipt Date: 20110920
  Transmission Date: 20120928
  Serious: Yes (Hospitalization)
  Sender: FDA-Public Use
  Company Number: AU-ROCHE-1102950

PATIENT

DRUGS (2)
  1. PEGASYS [Suspect]
     Indication: ILL-DEFINED DISORDER
     Route: 058
  2. RIBAVIRIN [Suspect]
     Indication: ILL-DEFINED DISORDER
     Dosage: 3 TABLETS IN THE MORNING, 3 TABLETS AT NIGHT

REACTIONS (1)
  - DEEP VEIN THROMBOSIS [None]
